FAERS Safety Report 20649697 (Version 1)
Quarter: 2022Q1

REPORT INFORMATION
  Report Type: Spontaneous
  Country: US (occurrence: US)
  Receive Date: 20220329
  Receipt Date: 20220329
  Transmission Date: 20220423
  Serious: No
  Sender: FDA-Public Use
  Company Number: US-SEBELA IRELAND LIMITED-2021SEB00138

PATIENT
  Age: 26 Year
  Sex: Female
  Weight: 72.562 kg

DRUGS (2)
  1. NAFTIN [Suspect]
     Active Substance: NAFTIFINE HYDROCHLORIDE
     Indication: Tinea pedis
     Dosage: 2X/DAY FOR 6 WEEKS
     Route: 061
  2. NAFTIN [Suspect]
     Active Substance: NAFTIFINE HYDROCHLORIDE
     Indication: Onychomycosis

REACTIONS (1)
  - Dermatitis contact [Recovered/Resolved]
